FAERS Safety Report 6030653-6 (Version None)
Quarter: 2009Q1

REPORT INFORMATION
  Report Type: 
  Country: None (occurrence: None)
  Receive Date: 20090107
  Receipt Date: 20090105
  Transmission Date: 20090719
  Serious: Yes (Hospitalization)
  Sender: FDA-Public Use
  Company Number: BE-ABBOTT-07P-013-0417441-00

PATIENT
  Sex: Female

DRUGS (9)
  1. HUMIRA [Suspect]
     Indication: RHEUMATOID ARTHRITIS
     Dates: start: 20040628, end: 20070301
  2. HUMIRA [Suspect]
     Dates: start: 20070601
  3. MEDROL [Concomitant]
     Indication: RHEUMATOID ARTHRITIS
  4. ELTHYRONE [Concomitant]
     Indication: DRUG USE FOR UNKNOWN INDICATION
  5. ASAFLOW [Concomitant]
     Indication: DRUG USE FOR UNKNOWN INDICATION
  6. INSULINE [Concomitant]
     Indication: DRUG USE FOR UNKNOWN INDICATION
  7. NOBITEN [Concomitant]
     Indication: DRUG USE FOR UNKNOWN INDICATION
  8. SIMVASTATIN [Concomitant]
     Indication: DRUG USE FOR UNKNOWN INDICATION
  9. ZESTORETIC [Concomitant]
     Indication: DRUG USE FOR UNKNOWN INDICATION

REACTIONS (1)
  - CARDIAC VALVE DISEASE [None]
